FAERS Safety Report 26037158 (Version 1)
Quarter: 2025Q4

REPORT INFORMATION
  Report Type: Spontaneous
  Country: US (occurrence: US)
  Receive Date: 20251112
  Receipt Date: 20251112
  Transmission Date: 20260117
  Serious: Yes (Other)
  Sender: ROCHE
  Company Number: US-ROCHE-10000430260

PATIENT
  Sex: Female

DRUGS (2)
  1. OCREVUS ZUNOVO [Suspect]
     Active Substance: HYALURONIDASE-OCSQ\OCRELIZUMAB
     Indication: Multiple sclerosis
     Dosage: 10 MINUTES SUBCUTANEOUS INFUSION IN THE ABDOMEN
     Route: 058
     Dates: start: 20250903
  2. OCREVUS [Suspect]
     Active Substance: OCRELIZUMAB
     Indication: Multiple sclerosis
     Route: 042

REACTIONS (2)
  - Multiple sclerosis relapse [Unknown]
  - Urinary tract infection [Unknown]

NARRATIVE: CASE EVENT DATE: 20251001
